FAERS Safety Report 25649217 (Version 1)
Quarter: 2025Q3

REPORT INFORMATION
  Report Type: Spontaneous
  Country: EU (occurrence: EU)
  Receive Date: 20250806
  Receipt Date: 20250806
  Transmission Date: 20251020
  Serious: Yes (Life-Threatening, Other)
  Sender: PFIZER
  Company Number: EU-PFIZER INC-PV202500093575

PATIENT
  Age: 38 Year
  Sex: Male

DRUGS (3)
  1. CABERGOLINE [Suspect]
     Active Substance: CABERGOLINE
     Indication: Pituitary tumour
     Dosage: 0.5 MG, WEEKLY (ONCE)
  2. CABERGOLINE [Suspect]
     Active Substance: CABERGOLINE
     Dosage: 0.5 MG, 2X/WEEK
  3. CABERGOLINE [Suspect]
     Active Substance: CABERGOLINE
     Dosage: 2 MG, WEEKLY (PROGRESSIVELY UPTITRATED TO A FINAL DOSE)

REACTIONS (1)
  - Pituitary apoplexy [Recovered/Resolved]
